FAERS Safety Report 10799102 (Version 1)
Quarter: 2015Q1

REPORT INFORMATION
  Report Type: Spontaneous
  Country: US (occurrence: US)
  Receive Date: 20150216
  Receipt Date: 20150216
  Transmission Date: 20150721
  Serious: No
  Sender: FDA-Public Use
  Company Number: US-ALLERGAN-1403204US

PATIENT
  Age: 82 Year
  Sex: Female

DRUGS (2)
  1. EYE DROPS AFTER LASER PROCEDURE NOS [Concomitant]
     Indication: POSTOPERATIVE CARE
  2. RESTASIS [Suspect]
     Active Substance: CYCLOSPORINE
     Indication: DRY EYE
     Dosage: UNK
     Route: 047
     Dates: start: 20140217, end: 20140217

REACTIONS (1)
  - Eye irritation [Recovered/Resolved]

NARRATIVE: CASE EVENT DATE: 20140217
